FAERS Safety Report 20808079 (Version 4)
Quarter: 2022Q3

REPORT INFORMATION
  Report Type: Spontaneous
  Country: US (occurrence: US)
  Receive Date: 20220510
  Receipt Date: 20220815
  Transmission Date: 20221027
  Serious: Yes (Life-Threatening, Hospitalization, Other)
  Sender: FDA-Public Use
  Company Number: US-GLAXOSMITHKLINE-US2022075616

PATIENT

DRUGS (4)
  1. ZEJULA [Suspect]
     Active Substance: NIRAPARIB
     Indication: Abdominal pain
     Dosage: 300 MG, QD
     Route: 048
     Dates: start: 20220428
  2. ZEJULA [Suspect]
     Active Substance: NIRAPARIB
     Dosage: 200 MG, QD
     Dates: start: 20220507
  3. ZEJULA [Suspect]
     Active Substance: NIRAPARIB
     Dosage: 100 MG, QD
     Route: 048
     Dates: start: 202205
  4. ZEJULA [Suspect]
     Active Substance: NIRAPARIB
     Dosage: 200 MG, QD
     Route: 048

REACTIONS (34)
  - Near death experience [Unknown]
  - Adverse drug reaction [Unknown]
  - Pulmonary oedema [Unknown]
  - Pain [Unknown]
  - Constipation [Unknown]
  - Malignant neoplasm progression [Unknown]
  - Illness [Unknown]
  - Fatigue [Unknown]
  - Asthenia [Unknown]
  - Tremor [Unknown]
  - Crying [Unknown]
  - Feeling abnormal [Unknown]
  - Anxiety [Unknown]
  - Nausea [Unknown]
  - Vomiting [Unknown]
  - Dyspnoea [Unknown]
  - Dry mouth [Unknown]
  - Middle insomnia [Unknown]
  - SARS-CoV-2 test positive [Unknown]
  - Cough [Unknown]
  - Productive cough [Unknown]
  - Thirst [Unknown]
  - Dry throat [Unknown]
  - Night sweats [Recovering/Resolving]
  - Headache [Unknown]
  - Lip swelling [Unknown]
  - Nasal dryness [Unknown]
  - Feeding disorder [Unknown]
  - Blood pressure increased [Unknown]
  - Nasal crusting [Unknown]
  - Tumour marker increased [Recovering/Resolving]
  - Drug intolerance [Unknown]
  - Product use in unapproved indication [Unknown]
  - Drug ineffective [Unknown]

NARRATIVE: CASE EVENT DATE: 20220513
